FAERS Safety Report 15260214 (Version 1)
Quarter: 2018Q4

REPORT INFORMATION
  Report Type: Spontaneous
  Country: US (occurrence: US)
  Receive Date: 20180809
  Receipt Date: 20180809
  Transmission Date: 20190204
  Serious: No
  Sender: FDA-Public Use
  Company Number: US-SA-2018SA196566

PATIENT
  Sex: Female

DRUGS (1)
  1. ASPERCREME PAIN RELIEVING [Suspect]
     Active Substance: TROLAMINE SALICYLATE
     Indication: PAIN
     Dosage: UNK UNK, UNK
     Route: 065

REACTIONS (3)
  - Headache [Unknown]
  - Pain [Recovering/Resolving]
  - Drug ineffective [Unknown]
